FAERS Safety Report 20110613 (Version 3)
Quarter: 2022Q1

REPORT INFORMATION
  Report Type: Report from Study
  Country: US (occurrence: US)
  Receive Date: 20211124
  Receipt Date: 20220222
  Transmission Date: 20220424
  Serious: Yes (Hospitalization, Other)
  Sender: FDA-Public Use
  Company Number: 2020IN000540

PATIENT

DRUGS (20)
  1. PEGASPARGASE [Suspect]
     Active Substance: PEGASPARGASE
     Indication: Acute lymphocytic leukaemia
     Dosage: 2500 IU/M2, D15 AND D43 OF CONSOLIDATION, D4 AND D43 OF DELAYED INTENSIFICATION AND D2 AND D22 OF IN
     Route: 042
     Dates: start: 20190218, end: 20191027
  2. PEGASPARGASE [Suspect]
     Active Substance: PEGASPARGASE
     Dosage: 2500 IU/M2
     Route: 042
     Dates: start: 20191029, end: 20191118
  3. PEGASPARGASE [Suspect]
     Active Substance: PEGASPARGASE
     Dosage: 2500 IU/M2
     Route: 042
     Dates: start: 20191127, end: 20191127
  4. PEGASPARGASE [Suspect]
     Active Substance: PEGASPARGASE
     Dosage: 2500 IU/M2
     Route: 042
     Dates: start: 20191206, end: 20191206
  5. PEGASPARGASE [Suspect]
     Active Substance: PEGASPARGASE
     Dosage: 2500 IU/M2
     Route: 042
     Dates: start: 20200113
  6. RUXOLITINIB PHOSPHATE [Suspect]
     Active Substance: RUXOLITINIB PHOSPHATE
     Indication: Acute lymphocytic leukaemia
     Dosage: 110 MG, BID
     Route: 048
     Dates: start: 20190218, end: 20191027
  7. RUXOLITINIB PHOSPHATE [Suspect]
     Active Substance: RUXOLITINIB PHOSPHATE
     Dosage: 110 MG, BID
     Route: 048
     Dates: start: 20191029, end: 20191118
  8. RUXOLITINIB PHOSPHATE [Suspect]
     Active Substance: RUXOLITINIB PHOSPHATE
     Dosage: 110 MG, BID
     Route: 048
     Dates: start: 20191126, end: 20191126
  9. RUXOLITINIB PHOSPHATE [Suspect]
     Active Substance: RUXOLITINIB PHOSPHATE
     Dosage: 110 MG, BID
     Route: 048
     Dates: start: 20200113
  10. VINCRISTINE SULFATE [Suspect]
     Active Substance: VINCRISTINE SULFATE
     Indication: Acute lymphocytic leukaemia
     Dosage: 1.5 MG/M2, WEEKLY OR EVERY 10 DAYS
     Route: 042
     Dates: start: 20190218, end: 20191027
  11. VINCRISTINE SULFATE [Suspect]
     Active Substance: VINCRISTINE SULFATE
     Dosage: 1.5 MG/M2
     Route: 042
     Dates: start: 20191029, end: 20191118
  12. VINCRISTINE SULFATE [Suspect]
     Active Substance: VINCRISTINE SULFATE
     Dosage: 1.5 MG/M2
     Route: 042
     Dates: start: 20191126, end: 20191126
  13. VINCRISTINE SULFATE [Suspect]
     Active Substance: VINCRISTINE SULFATE
     Dosage: 1.5 MG/M2
     Route: 042
     Dates: start: 20191206, end: 20191206
  14. VINCRISTINE SULFATE [Suspect]
     Active Substance: VINCRISTINE SULFATE
     Dosage: 1.5 MG/M2
     Route: 042
     Dates: start: 20200113
  15. METHOTREXATE SODIUM [Suspect]
     Active Substance: METHOTREXATE SODIUM
     Indication: Acute lymphocytic leukaemia
     Dosage: 100 MG/M2, ESCALATING DOSE EVERY 10 DAYS
     Route: 042
     Dates: start: 20190218, end: 20191127
  16. METHOTREXATE SODIUM [Suspect]
     Active Substance: METHOTREXATE SODIUM
     Dosage: 100 MG/M2
     Route: 042
     Dates: start: 20191029, end: 20191118
  17. METHOTREXATE SODIUM [Suspect]
     Active Substance: METHOTREXATE SODIUM
     Dosage: 100 MG/M2
     Route: 042
     Dates: start: 20191126, end: 20191126
  18. METHOTREXATE SODIUM [Suspect]
     Active Substance: METHOTREXATE SODIUM
     Dosage: 100 MG/M2
     Route: 042
     Dates: start: 20191206, end: 20191206
  19. METHOTREXATE SODIUM [Suspect]
     Active Substance: METHOTREXATE SODIUM
     Dosage: 100 MG/M2
     Route: 042
     Dates: start: 20200113
  20. TN UNSPECIFIED [Concomitant]
     Indication: Product used for unknown indication
     Dosage: UNK
     Route: 065
     Dates: start: 20190218

REACTIONS (7)
  - Colitis [Recovered/Resolved]
  - Colitis [Recovered/Resolved]
  - Iron overload [Recovering/Resolving]
  - Hepatic steatosis [Recovering/Resolving]
  - Gamma-glutamyltransferase increased [Recovering/Resolving]
  - Febrile neutropenia [Recovered/Resolved]
  - Pyrexia [Recovered/Resolved]

NARRATIVE: CASE EVENT DATE: 20190923
